FAERS Safety Report 5156801-8 (Version None)
Quarter: 2006Q4

REPORT INFORMATION
  Report Type: 
  Country: None (occurrence: None)
  Receive Date: 20061115
  Receipt Date: 20061103
  Transmission Date: 20070319
  Serious: Yes (Other)
  Sender: FDA-Public Use
  Company Number: 15135

PATIENT
  Age: 44 Year
  Sex: Female

DRUGS (5)
  1. METOCLOPRAMIDE [Suspect]
     Indication: NAUSEA
     Dosage: 10 MG IV
  2. METOCLOPRAMIDE [Suspect]
     Indication: VOMITING
     Dosage: 10 MG IV
  3. ACETAMINOPHEN [Concomitant]
  4. TALVOSILEN [Concomitant]
  5. BUTYLSCOPOLAMINE [Concomitant]

REACTIONS (1)
  - ANAPHYLACTIC REACTION [None]
